FAERS Safety Report 5713176-0 (Version None)
Quarter: 2008Q2

REPORT INFORMATION
  Report Type: 
  Country: None (occurrence: None)
  Receive Date: 20080422
  Receipt Date: 19860430
  Transmission Date: 20081010
  Serious: Yes (Death)
  Sender: FDA-Public Use
  Company Number: US-ROCHE-5944

PATIENT
  Sex: Male
  Weight: 62.3 kg

DRUGS (7)
  1. TICLOPIDINE HCL [Suspect]
     Indication: CEREBROVASCULAR ACCIDENT PROPHYLAXIS
     Route: 048
     Dates: start: 19830725
  2. ACETYLSALICYLIC ACID SRT [Suspect]
     Indication: CEREBROVASCULAR ACCIDENT PROPHYLAXIS
     Route: 048
     Dates: start: 19830723
  3. THEO-DUR [Concomitant]
     Route: 048
     Dates: start: 19851003
  4. PREDNISONE [Concomitant]
     Indication: ASTHMA
     Route: 048
     Dates: start: 19851003
  5. ERYTHROMYCIN [Concomitant]
     Route: 048
     Dates: start: 19851003
  6. CODEINE SUL TAB [Concomitant]
     Route: 048
     Dates: start: 19850912, end: 19851012
  7. SULFAMETHOXAZOLE [Concomitant]
     Route: 048
     Dates: start: 19850912, end: 19851002

REACTIONS (1)
  - DEATH [None]
